FAERS Safety Report 21280186 (Version 1)
Quarter: 2022Q3

REPORT INFORMATION
  Report Type: Spontaneous
  Country: US (occurrence: US)
  Receive Date: 20220901
  Receipt Date: 20220901
  Transmission Date: 20221026
  Serious: No
  Sender: FDA-Public Use
  Company Number: US-GSK-US2022121882

PATIENT
  Age: 55 Year
  Sex: Female

DRUGS (1)
  1. BLENREP [Suspect]
     Active Substance: BELANTAMAB MAFODOTIN-BLMF
     Indication: Plasma cell myeloma
     Dosage: 25 MG/KG, Q3W
     Route: 065
     Dates: start: 20220627

REACTIONS (1)
  - Ocular toxicity [Unknown]

NARRATIVE: CASE EVENT DATE: 20220810
